FAERS Safety Report 7459954-1 (Version None)
Quarter: 2011Q2

REPORT INFORMATION
  Report Type: 
  Country: None (occurrence: None)
  Receive Date: 20110505
  Receipt Date: 20110427
  Transmission Date: 20111010
  Serious: Yes (Hospitalization, Other)
  Sender: FDA-Public Use
  Company Number: US-GENZYME-CLOF-1001474

PATIENT
  Sex: Female
  Weight: 12.1 kg

DRUGS (6)
  1. RANITIDINE [Concomitant]
     Indication: GASTROOESOPHAGEAL REFLUX DISEASE
     Dosage: 15 MG, BID
     Route: 048
     Dates: start: 20110302
  2. CLOLAR [Suspect]
     Indication: ACUTE MYELOID LEUKAEMIA
     Dosage: 28.1 MG (52 MG/M2/DOSE), QDX5 ON DAYS 1-5
     Route: 042
     Dates: start: 20110220, end: 20110224
  3. CYTARABINE [Suspect]
     Indication: ACUTE MYELOID LEUKAEMIA
     Dosage: 540 MG (1000 MG/M2/DOSE), QDX5 ON DAYS 1-5
     Route: 042
     Dates: start: 20110220, end: 20110224
  4. CYTARABINE [Suspect]
     Dosage: 530 MG (1000 MG/M2/DOSE), QDX5
     Route: 042
     Dates: start: 20110312, end: 20110316
  5. CLOLAR [Suspect]
     Dosage: 27.6 MG (52 MG/M2/DOSE), QDX5
     Route: 042
     Dates: start: 20110312, end: 20110316
  6. FLUCONAZOLE [Concomitant]
     Indication: PROPHYLAXIS
     Dosage: 60 MG, QD
     Route: 048
     Dates: start: 20110302

REACTIONS (2)
  - LIPASE INCREASED [None]
  - NEUTROPENIC INFECTION [None]
